FAERS Safety Report 8107290-2 (Version None)
Quarter: 2012Q1

REPORT INFORMATION
  Report Type: 
  Country: None (occurrence: None)
  Receive Date: 20120202
  Receipt Date: 20120124
  Transmission Date: 20120608
  Serious: Yes (Hospitalization)
  Sender: FDA-Public Use
  Company Number: DK-PFIZER INC-K200900550

PATIENT
  Age: 66 Year
  Sex: Male

DRUGS (5)
  1. METOLAZONE [Suspect]
     Indication: ISCHAEMIC CARDIOMYOPATHY
     Dosage: 2.5 MG, 1X/DAY
  2. RAMIPRIL [Suspect]
     Dosage: 2.5 MG, 1X/DAY (5 MG IN MORNING AND 2.5 MG AT NIGHT)
     Dates: start: 20050301
  3. RAMIPRIL [Suspect]
     Indication: ISCHAEMIC CARDIOMYOPATHY
     Dosage: 5 MG, 1X/DAY (5MG IN MORNING AND 2.5 MG AT NIGHT)
     Dates: start: 20050301
  4. FUROSEMIDE [Suspect]
     Indication: ISCHAEMIC CARDIOMYOPATHY
     Dosage: 40 MG, 3 TABLETS DAILY
  5. SPIRONOLACTONE [Suspect]
     Indication: ISCHAEMIC CARDIOMYOPATHY
     Dosage: 12.5 MG, 1X/DAY

REACTIONS (7)
  - DEHYDRATION [None]
  - RENAL DISORDER [None]
  - BLOOD PRESSURE INCREASED [None]
  - BLOOD UREA INCREASED [None]
  - AZOTAEMIA [None]
  - BLOOD CREATININE INCREASED [None]
  - BLOOD SODIUM DECREASED [None]
